FAERS Safety Report 4985439-8 (Version None)
Quarter: 2006Q2

REPORT INFORMATION
  Report Type: 
  Country: None (occurrence: None)
  Receive Date: 20060428
  Receipt Date: 20060417
  Transmission Date: 20061013
  Serious: Yes (Death, Other)
  Sender: FDA-Public Use
  Company Number: US-JNJFOC-20051205215

PATIENT
  Sex: Female

DRUGS (1)
  1. REMICADE [Suspect]
     Indication: ARTHRITIS
     Route: 042

REACTIONS (6)
  - CARDIAC DISORDER [None]
  - CENTRAL NERVOUS SYSTEM LYMPHOMA [None]
  - INTESTINAL PERFORATION [None]
  - PLATELET COUNT DECREASED [None]
  - RESPIRATORY DISORDER [None]
  - SEPTIC SHOCK [None]
